FAERS Safety Report 15310940 (Version 1)
Quarter: 2018Q3

REPORT INFORMATION
  Report Type: Spontaneous
  Country: US (occurrence: US)
  Receive Date: 20180823
  Receipt Date: 20180823
  Transmission Date: 20181010
  Serious: No
  Sender: FDA-Public Use
  Company Number: US-BAUSCH-BL-2018-002654

PATIENT
  Age: 53 Year
  Sex: Female
  Weight: 63.56 kg

DRUGS (1)
  1. NORITATE [Suspect]
     Active Substance: METRONIDAZOLE
     Indication: ACNE
     Dosage: STARTED THREE TO FOUR MONTHS AGO, USES WHEN NEEDED (A SIZE OF SMALL PEBBLE)
     Route: 061

REACTIONS (5)
  - Expired product administered [Not Recovered/Not Resolved]
  - Product quality issue [Unknown]
  - Product physical consistency issue [Unknown]
  - Acne [Recovered/Resolved]
  - Drug ineffective [Not Recovered/Not Resolved]
